FAERS Safety Report 18388653 (Version 1)
Quarter: 2020Q4

REPORT INFORMATION
  Report Type: Spontaneous
  Country: IT (occurrence: IT)
  Receive Date: 20201015
  Receipt Date: 20201015
  Transmission Date: 20210114
  Serious: Yes (Hospitalization)
  Sender: FDA-Public Use
  Company Number: IT-ASTRAZENECA-2020SF30147

PATIENT
  Age: 39 Year
  Sex: Female

DRUGS (6)
  1. QUETIAPINE. [Suspect]
     Active Substance: QUETIAPINE
     Dosage: 60.0DF ONCE/SINGLE ADMINISTRATION
     Route: 048
     Dates: start: 20200809, end: 20200809
  2. TEGRETOL [Suspect]
     Active Substance: CARBAMAZEPINE
     Dosage: 30.0DF ONCE/SINGLE ADMINISTRATION
     Route: 048
     Dates: start: 20200809, end: 20200809
  3. PARACETAMOL [Suspect]
     Active Substance: ACETAMINOPHEN
     Dosage: 32.0G ONCE/SINGLE ADMINISTRATION
     Route: 048
     Dates: start: 20200809, end: 20200809
  4. INVEGA [Suspect]
     Active Substance: PALIPERIDONE
     Dosage: 28.0DF ONCE/SINGLE ADMINISTRATION
     Route: 048
     Dates: start: 20200809, end: 20200809
  5. DELORAZEPAM [Suspect]
     Active Substance: DELORAZEPAM
     Dosage: 20.0ML ONCE/SINGLE ADMINISTRATION
     Route: 048
     Dates: start: 20200809, end: 20200809
  6. NUROFEN [Suspect]
     Active Substance: IBUPROFEN
     Dosage: 24.0DF ONCE/SINGLE ADMINISTRATION
     Route: 048
     Dates: start: 20200809, end: 20200809

REACTIONS (5)
  - Intentional self-injury [Recovering/Resolving]
  - Hypotension [Recovering/Resolving]
  - Intentional overdose [Recovering/Resolving]
  - Bradyphrenia [Recovering/Resolving]
  - Somnolence [Recovering/Resolving]

NARRATIVE: CASE EVENT DATE: 20200809
